FAERS Safety Report 9643219 (Version 5)
Quarter: 2018Q1

REPORT INFORMATION
  Report Type: Report from Study
  Country: None (occurrence: US)
  Receive Date: 20131024
  Receipt Date: 20180312
  Transmission Date: 20180509
  Serious: Yes (Other)
  Sender: FDA-Public Use
  Company Number: US-ABBVIE-13P-163-1159275-00

PATIENT
  Age: 59 Year
  Sex: Female
  Weight: 77.18 kg

DRUGS (26)
  1. ESTRADIOL. [Concomitant]
     Active Substance: ESTRADIOL
     Indication: HORMONE REPLACEMENT THERAPY
     Route: 048
     Dates: start: 20130128
  2. TEMAZEPAM. [Concomitant]
     Active Substance: TEMAZEPAM
     Indication: RESTLESS LEGS SYNDROME
     Dosage: 1 QHS PRN
     Route: 048
     Dates: start: 20130610, end: 20131022
  3. FEXOFENADINE [Concomitant]
     Active Substance: FEXOFENADINE\FEXOFENADINE HYDROCHLORIDE
     Indication: PRODUCT USED FOR UNKNOWN INDICATION
     Route: 048
     Dates: start: 20110513
  4. BRINZOLAMIDE [Concomitant]
     Active Substance: BRINZOLAMIDE
     Indication: PRODUCT USED FOR UNKNOWN INDICATION
     Route: 047
  5. HUMIRA [Suspect]
     Active Substance: ADALIMUMAB
     Indication: ANKYLOSING SPONDYLITIS
     Route: 058
     Dates: start: 20120723, end: 201801
  6. OMEPRAZOLE. [Concomitant]
     Active Substance: OMEPRAZOLE
     Indication: GASTRIC DISORDER
     Route: 048
     Dates: start: 20130320
  7. METHOCARBINOL [Concomitant]
     Indication: MUSCLE SPASMS
     Dosage: 1-2 TAB Q6H PRN
     Route: 048
     Dates: start: 20130128
  8. LEVOTHYROXINE. [Concomitant]
     Active Substance: LEVOTHYROXINE
     Indication: HYPOTHYROIDISM
     Route: 048
     Dates: start: 20121129, end: 20131202
  9. BACLOFEN. [Concomitant]
     Active Substance: BACLOFEN
     Indication: PRODUCT USED FOR UNKNOWN INDICATION
     Dosage: 1 TABLET PRN
     Route: 048
  10. DORZOLAMIDE [Concomitant]
     Active Substance: DORZOLAMIDE
     Indication: GLAUCOMA
  11. LATANOPROST. [Concomitant]
     Active Substance: LATANOPROST
     Indication: GLAUCOMA
     Dosage: 1 DROP EACH EYE QHS
     Route: 047
  12. SULFASALAZINE. [Concomitant]
     Active Substance: SULFASALAZINE
     Indication: PRODUCT USED FOR UNKNOWN INDICATION
  13. BRIMONIDE TARTRATE [Concomitant]
     Indication: PRODUCT USED FOR UNKNOWN INDICATION
     Dosage: 1 DROP EACH EYE QD
     Route: 047
  14. MELOXICAM. [Concomitant]
     Active Substance: MELOXICAM
     Indication: PRODUCT USED FOR UNKNOWN INDICATION
     Route: 048
  15. PREDNISOLONE 1% [Concomitant]
     Indication: IRITIS
     Dosage: 1-2 DROPS WEEKLY PRN
  16. HYDROCODONE/ACETAMINOPHEN [Concomitant]
     Active Substance: ACETAMINOPHEN\HYDROCODONE
     Indication: PAIN
     Dosage: 5/325MG 1 TAB Q6H PRN
     Route: 048
     Dates: start: 20130128
  17. GABAPENTIN. [Concomitant]
     Active Substance: GABAPENTIN
     Indication: PRODUCT USED FOR UNKNOWN INDICATION
     Route: 048
     Dates: start: 20131021
  18. ATORVASTATIN [Concomitant]
     Active Substance: ATORVASTATIN
     Indication: PRODUCT USED FOR UNKNOWN INDICATION
     Route: 048
     Dates: start: 20131007
  19. HUMIRA [Suspect]
     Active Substance: ADALIMUMAB
     Indication: IRITIS
     Route: 058
  20. ALPHAGAN P [Concomitant]
     Active Substance: BRIMONIDINE TARTRATE
     Indication: GLAUCOMA
  21. PIROXICAM. [Concomitant]
     Active Substance: PIROXICAM
     Indication: ANTIINFLAMMATORY THERAPY
     Route: 048
     Dates: start: 20131004
  22. BACTROBAN 2% [Concomitant]
     Indication: PRODUCT USED FOR UNKNOWN INDICATION
     Dosage: 1 DOLLUP INSIDE R NOSTIL 3-4 TIME/DAY
     Dates: start: 20121129
  23. OMEPRAZOLE. [Concomitant]
     Active Substance: OMEPRAZOLE
     Indication: PROPHYLAXIS
  24. AMBIEN [Concomitant]
     Active Substance: ZOLPIDEM TARTRATE
     Indication: PRODUCT USED FOR UNKNOWN INDICATION
     Dosage: 0.5-1 TABLET QHS PRN
     Route: 048
     Dates: start: 20130809, end: 20131022
  25. TRAMADOL. [Concomitant]
     Active Substance: TRAMADOL
     Indication: PAIN
     Dosage: Q6H PRN
     Route: 048
     Dates: start: 20130610, end: 20131021
  26. VOLTAREN 1% EX GEL [Concomitant]
     Indication: PRODUCT USED FOR UNKNOWN INDICATION
     Route: 061

REACTIONS (21)
  - Headache [Not Recovered/Not Resolved]
  - Arthralgia [Unknown]
  - Spondylolisthesis [Unknown]
  - Inner ear disorder [Unknown]
  - Retinal tear [Unknown]
  - Bursitis [Unknown]
  - Drug ineffective [Unknown]
  - Dehydration [Not Recovered/Not Resolved]
  - Feeling cold [Not Recovered/Not Resolved]
  - Dry mouth [Not Recovered/Not Resolved]
  - Iritis [Unknown]
  - Sneezing [Not Recovered/Not Resolved]
  - Visual impairment [Unknown]
  - Pain [Unknown]
  - Dry eye [Unknown]
  - Diabetes mellitus [Unknown]
  - Eye operation [Unknown]
  - Glaucoma [Unknown]
  - Body mass index increased [Unknown]
  - Back pain [Recovering/Resolving]
  - Arthralgia [Unknown]

NARRATIVE: CASE EVENT DATE: 201307
